FAERS Safety Report 5023618-4 (Version None)
Quarter: 2006Q2

REPORT INFORMATION
  Report Type: 
  Country: None (occurrence: None)
  Receive Date: 20060606
  Receipt Date: 20060524
  Transmission Date: 20061013
  Serious: Yes (Hospitalization)
  Sender: FDA-Public Use
  Company Number: 2006-089

PATIENT
  Age: 57 Year
  Sex: Female

DRUGS (4)
  1. TORSEMIDE [Suspect]
     Indication: CARDIAC FAILURE
     Dosage: 80MG IV
  2. FUROSEMIDE [Suspect]
     Indication: CARDIAC FAILURE
     Dosage: 40MG IV
     Route: 042
  3. ETACRYNIC ACID [Concomitant]
  4. DIGOXIN [Concomitant]

REACTIONS (5)
  - CARDIAC FAILURE [None]
  - CONDITION AGGRAVATED [None]
  - DISEASE RECURRENCE [None]
  - MYALGIA [None]
  - PANCREATITIS [None]
